FAERS Safety Report 17911314 (Version 1)
Quarter: 2020Q2

REPORT INFORMATION
  Report Type: Spontaneous
  Country: FR (occurrence: FR)
  Receive Date: 20200618
  Receipt Date: 20200618
  Transmission Date: 20200714
  Serious: Yes (Other)
  Sender: FDA-Public Use
  Company Number: FR-LUPIN PHARMACEUTICALS INC.-2020-02923

PATIENT
  Age: 8 Year
  Sex: Female

DRUGS (1)
  1. CETIRIZINE [Suspect]
     Active Substance: CETIRIZINE HYDROCHLORIDE
     Indication: PRODUCT USED FOR UNKNOWN INDICATION
     Dosage: 20 MILLIGRAM (2 TABLET OF 10 MG)
     Route: 048

REACTIONS (5)
  - Dry mouth [Unknown]
  - Restlessness [Unknown]
  - Hallucination [Unknown]
  - Intentional overdose [Unknown]
  - Aggression [Unknown]
